FAERS Safety Report 6748193-5 (Version None)
Quarter: 2010Q2

REPORT INFORMATION
  Report Type: 
  Country: None (occurrence: None)
  Receive Date: 20100531
  Receipt Date: 20100517
  Transmission Date: 20101027
  Serious: Yes (Other)
  Sender: FDA-Public Use
  Company Number: US-ELI_LILLY_AND_COMPANY-US201003003479

PATIENT
  Age: 28 Year
  Sex: Female

DRUGS (5)
  1. CYMBALTA [Suspect]
     Indication: DEPRESSION
     Dosage: 30 MG, UNKNOWN
     Route: 065
     Dates: start: 20060808, end: 20061107
  2. CYMBALTA [Suspect]
     Dosage: 15 MG, UNKNOWN
     Route: 065
     Dates: start: 20060101, end: 20060101
  3. PROZAC [Suspect]
  4. MIRAPEX [Concomitant]
  5. KLONOPIN [Concomitant]

REACTIONS (10)
  - AGITATION [None]
  - DRUG EXPOSURE DURING PREGNANCY [None]
  - DRUG WITHDRAWAL SYNDROME [None]
  - DYSARTHRIA [None]
  - EMOTIONAL DISTRESS [None]
  - FORMICATION [None]
  - NAUSEA [None]
  - PANIC DISORDER [None]
  - SUICIDAL IDEATION [None]
  - VOMITING [None]
